FAERS Safety Report 8612052-3 (Version None)
Quarter: 2012Q3

REPORT INFORMATION
  Report Type: 
  Country: None (occurrence: None)
  Receive Date: 20120809
  Receipt Date: 20120723
  Transmission Date: 20120928
  Serious: Yes (Other)
  Sender: FDA-Public Use
  Company Number: 2012MA009543

PATIENT
  Age: 64 Year
  Sex: Female

DRUGS (5)
  1. S-OROPEAM [Concomitant]
  2. SEDOXIL [Concomitant]
  3. DONEPEZIL HYDROCHLORIDE [Suspect]
     Indication: PRODUCT USED FOR UNKNOWN INDICATION
     Dosage: PO
     Route: 048
     Dates: start: 20111101, end: 20120201
  4. BUMETANIDE [Concomitant]
  5. ENALAPRIL MALEATE [Concomitant]

REACTIONS (3)
  - JAUNDICE [None]
  - LIVER DISORDER [None]
  - HEPATITIS [None]
